FAERS Safety Report 9815287 (Version 1)
Quarter: 2014Q1

REPORT INFORMATION
  Report Type: Spontaneous
  Country: ES (occurrence: ES)
  Receive Date: 20140114
  Receipt Date: 20140114
  Transmission Date: 20141002
  Serious: Yes (Other)
  Sender: FDA-Public Use
  Company Number: ES-ORION CORPORATION ORION PHARMA-ENT 2014-0008

PATIENT
  Age: 61 Year
  Sex: Female

DRUGS (3)
  1. ENTACAPONE [Suspect]
     Indication: PARKINSON^S DISEASE
     Route: 048
  2. L-DOPA [Suspect]
     Indication: PARKINSON^S DISEASE
     Route: 048
  3. PRAMIPEXOLE [Suspect]
     Indication: PARKINSON^S DISEASE
     Route: 048

REACTIONS (5)
  - Compulsive shopping [Recovered/Resolved]
  - Dopamine dysregulation syndrome [Recovered/Resolved]
  - Stereotypy [Recovering/Resolving]
  - On and off phenomenon [Recovering/Resolving]
  - Dyskinesia [Recovering/Resolving]
